FAERS Safety Report 8336994-1 (Version None)
Quarter: 2012Q2

REPORT INFORMATION
  Report Type: 
  Country: None (occurrence: None)
  Receive Date: 20120504
  Receipt Date: 20120426
  Transmission Date: 20120825
  Serious: Yes (Other)
  Sender: FDA-Public Use
  Company Number: JP-VERTEX PHARMACEUTICALS INC.-AE-2012-001078

PATIENT
  Age: 57 Year
  Sex: Female

DRUGS (17)
  1. PEG-INTRON [Concomitant]
     Indication: HEPATITIS C
     Route: 058
     Dates: start: 20120111, end: 20120213
  2. REBETOL [Concomitant]
     Indication: HEPATITIS C
     Route: 048
     Dates: start: 20120111, end: 20120205
  3. TELAVIC (TELAPREVIR) [Suspect]
     Route: 048
     Dates: start: 20120120, end: 20120318
  4. LIVALO [Concomitant]
     Route: 048
     Dates: end: 20120113
  5. PEG-INTRON [Concomitant]
     Route: 058
     Dates: start: 20120220
  6. PEG-INTRON [Concomitant]
     Route: 058
     Dates: end: 20120319
  7. CLARITIN REDITABS [Concomitant]
     Route: 048
  8. TELAVIC (TELAPREVIR) [Suspect]
     Indication: HEPATITIS C
     Route: 048
     Dates: start: 20120111, end: 20120113
  9. REBETOL [Concomitant]
     Route: 048
     Dates: start: 20120213, end: 20120318
  10. FEROTYM [Concomitant]
     Route: 048
  11. DEPAS [Concomitant]
     Route: 048
  12. LIVALO [Concomitant]
     Route: 048
     Dates: start: 20120206, end: 20120325
  13. ETIZOLAM [Concomitant]
     Route: 048
  14. NIZATIDINE [Concomitant]
     Route: 048
     Dates: start: 20120227
  15. PEG-INTRON [Concomitant]
     Route: 058
     Dates: start: 20120402
  16. EPADEL S [Concomitant]
     Route: 048
     Dates: end: 20120325
  17. REBETOL [Concomitant]
     Route: 048
     Dates: start: 20120206, end: 20120212

REACTIONS (2)
  - RENAL DISORDER [None]
  - ANAEMIA [None]
